FAERS Safety Report 19937469 (Version 9)
Quarter: 2025Q1

REPORT INFORMATION
  Report Type: Report from Study
  Country: DE (occurrence: DE)
  Receive Date: 20211011
  Receipt Date: 20250109
  Transmission Date: 20250409
  Serious: No
  Sender: ROCHE
  Company Number: DE-ROCHE-2752504

PATIENT
  Age: 39 Year
  Sex: Female

DRUGS (11)
  1. OCREVUS [Suspect]
     Active Substance: OCRELIZUMAB
     Indication: Primary progressive multiple sclerosis
     Route: 042
     Dates: start: 20190725
  2. OCREVUS [Suspect]
     Active Substance: OCRELIZUMAB
     Dosage: SUBSEQUENT DOSES 600 MG 1 IN 161, 196 DAYS
     Route: 042
     Dates: start: 20210107
  3. OCREVUS [Suspect]
     Active Substance: OCRELIZUMAB
     Route: 042
  4. SPIKEVAX [Suspect]
     Active Substance: CX-046684
     Indication: Product used for unknown indication
     Route: 065
  5. SPIKEVAX [Suspect]
     Active Substance: CX-046684
     Route: 065
     Dates: start: 20210608
  6. SODIUM PROPIONATE [Concomitant]
     Active Substance: SODIUM PROPIONATE
  7. VALPROIC ACID [Concomitant]
     Active Substance: VALPROIC ACID
  8. QUETIAPINE [Concomitant]
     Active Substance: QUETIAPINE
  9. LIORESAL [Concomitant]
     Active Substance: BACLOFEN
  10. VITAMIN D [Concomitant]
     Active Substance: VITAMIN D NOS
  11. VITAMIN B12 [Concomitant]
     Active Substance: CYANOCOBALAMIN

REACTIONS (11)
  - Asthenia [Recovered/Resolved]
  - Ear pain [Recovered/Resolved]
  - Dysphagia [Recovered/Resolved]
  - Fine motor skill dysfunction [Not Recovered/Not Resolved]
  - Tremor [Not Recovered/Not Resolved]
  - Viral test positive [Not Recovered/Not Resolved]
  - Influenza like illness [Recovered/Resolved]
  - B-lymphocyte count decreased [Recovered/Resolved]
  - Headache [Recovered/Resolved]
  - Nasopharyngitis [Recovered/Resolved]
  - Inflammatory marker increased [Recovered/Resolved]

NARRATIVE: CASE EVENT DATE: 20210107
